FAERS Safety Report 16779263 (Version 1)
Quarter: 2019Q3

REPORT INFORMATION
  Report Type: Spontaneous
  Country: US (occurrence: US)
  Receive Date: 20190906
  Receipt Date: 20190906
  Transmission Date: 20191005
  Serious: No
  Sender: FDA-Public Use
  Company Number: US-PFIZER INC-2019381545

PATIENT
  Age: 26 Year
  Sex: Female

DRUGS (3)
  1. CYTOTEC [Suspect]
     Active Substance: MISOPROSTOL
     Indication: GASTRIC ULCER
     Dosage: 200 UG, 2X/DAY (ONE EVERY 12 HOURS)
  2. MISOPROSTOL. [Suspect]
     Active Substance: MISOPROSTOL
  3. VOLTAREN [Suspect]
     Active Substance: DICLOFENAC SODIUM
     Indication: BACK PAIN
     Dosage: 75 MG, 2X/DAY (ONCE EVERY 12 HOURS)
     Dates: start: 20190830

REACTIONS (4)
  - Abdominal pain [Unknown]
  - Vaginal haemorrhage [Unknown]
  - Muscle spasms [Unknown]
  - Product prescribing error [Unknown]
